FAERS Safety Report 5133117-7 (Version None)
Quarter: 2006Q4

REPORT INFORMATION
  Report Type: 
  Country: None (occurrence: None)
  Receive Date: 20061017
  Receipt Date: 20061006
  Transmission Date: 20070319
  Serious: Yes (Hospitalization)
  Sender: FDA-Public Use
  Company Number: 2006122726

PATIENT
  Age: 59 Year
  Sex: Female

DRUGS (2)
  1. NIFEDIPINE [Suspect]
     Dosage: 30 MG ORAL
     Route: 048
  2. SIMVASTATIN [Suspect]
     Indication: HYPERLIPIDAEMIA
     Dosage: 20 MG ORAL
     Route: 048
     Dates: start: 20010101

REACTIONS (3)
  - ASCITES [None]
  - MYALGIA [None]
  - OLIGURIA [None]
